FAERS Safety Report 7391250-3 (Version None)
Quarter: 2011Q2

REPORT INFORMATION
  Report Type: 
  Country: None (occurrence: None)
  Receive Date: 20110404
  Receipt Date: 20110325
  Transmission Date: 20111010
  Serious: Yes (Hospitalization)
  Sender: FDA-Public Use
  Company Number: US-SANOFI-AVENTIS-2011SA018110

PATIENT
  Sex: Female

DRUGS (1)
  1. LASIX [Suspect]
     Route: 065

REACTIONS (2)
  - FLUID RETENTION [None]
  - MEDICATION ERROR [None]
